FAERS Safety Report 11891170 (Version 12)
Quarter: 2017Q1

REPORT INFORMATION
  Report Type: Spontaneous
  Country: US (occurrence: US)
  Receive Date: 20160106
  Receipt Date: 20170303
  Transmission Date: 20170428
  Serious: Yes (Other)
  Sender: FDA-Public Use
  Company Number: PHEH2015US027577

PATIENT
  Age: 34 Year
  Sex: Female
  Weight: 63.49 kg

DRUGS (2)
  1. ZOFRAN [Suspect]
     Active Substance: ONDANSETRON HYDROCHLORIDE
     Indication: VOMITING IN PREGNANCY
     Dosage: 8 MG
     Route: 048
     Dates: start: 200904, end: 20091231
  2. ONDANSETRON [Suspect]
     Active Substance: ONDANSETRON
     Indication: VOMITING IN PREGNANCY
     Dosage: 8 MG
     Route: 065
     Dates: start: 200904, end: 20091231

REACTIONS (6)
  - Emotional distress [Unknown]
  - Pain [Unknown]
  - Maternal exposure during pregnancy [Unknown]
  - Anxiety [Unknown]
  - Premature delivery [Unknown]
  - Product use issue [Unknown]

NARRATIVE: CASE EVENT DATE: 20091231
